FAERS Safety Report 23504823 (Version 1)
Quarter: 2024Q1

REPORT INFORMATION
  Report Type: Spontaneous
  Country: US (occurrence: US)
  Receive Date: 20240209
  Receipt Date: 20240209
  Transmission Date: 20240409
  Serious: No
  Sender: FDA-Public Use
  Company Number: US-CIPLA LTD.-2023US07857

PATIENT

DRUGS (2)
  1. ALBUTEROL\IPRATROPIUM [Suspect]
     Active Substance: ALBUTEROL\IPRATROPIUM
     Indication: Product used for unknown indication
     Dosage: UNK, EVERY 4 HOURS
     Route: 065
  2. ALBUTEROL\IPRATROPIUM [Suspect]
     Active Substance: ALBUTEROL\IPRATROPIUM
     Dosage: UNK, EVERY 4 HOURS
     Route: 065

REACTIONS (5)
  - Illness [Unknown]
  - Product quality issue [Unknown]
  - Liquid product physical issue [Unknown]
  - Bronchitis chronic [Unknown]
  - Chronic obstructive pulmonary disease [Unknown]
